FAERS Safety Report 8198404-7 (Version None)
Quarter: 2012Q1

REPORT INFORMATION
  Report Type: 
  Country: None (occurrence: None)
  Receive Date: 20120309
  Receipt Date: 20111227
  Transmission Date: 20120608
  Serious: No
  Sender: FDA-Public Use
  Company Number: US-AMGEN-USASP2011068949

PATIENT
  Age: 88 Year
  Sex: Female

DRUGS (11)
  1. GABAPENTIN [Concomitant]
     Dosage: 100 MG, QID
  2. CALTRATE                           /00751519/ [Concomitant]
     Dosage: UNK UNK, QD
  3. ASPIRIN [Concomitant]
     Dosage: 1 MG, QD
  4. FISH OIL [Concomitant]
     Dosage: UNK UNK, QD
  5. COREG [Concomitant]
     Dosage: 25 MG, QD
  6. COUMADIN [Concomitant]
  7. CENTRUM SILVER                     /01292501/ [Concomitant]
     Dosage: UNK UNK, QD
  8. PROLIA [Suspect]
     Indication: OSTEOPOROSIS POSTMENOPAUSAL
     Dates: start: 20110701
  9. PRILOSEC [Concomitant]
     Dosage: 1 MG, QD
  10. SPIRONOLACTONE [Concomitant]
     Dosage: 25 MG, QD
  11. TRIAMTERENE [Concomitant]
     Dosage: UNK, QD

REACTIONS (5)
  - URINARY TRACT INFECTION [None]
  - GENITAL RASH [None]
  - DIARRHOEA [None]
  - CYSTITIS [None]
  - RASH ERYTHEMATOUS [None]
